FAERS Safety Report 16787147 (Version 1)
Quarter: 2019Q3

REPORT INFORMATION
  Report Type: Spontaneous
  Country: US (occurrence: US)
  Receive Date: 20190909
  Receipt Date: 20190909
  Transmission Date: 20191005
  Serious: No
  Sender: FDA-Public Use
  Company Number: US-SA-2019SA245501

PATIENT

DRUGS (1)
  1. FLOMAX [Suspect]
     Active Substance: TAMSULOSIN HYDROCHLORIDE
     Dosage: UNK UNK, UNK
     Route: 065

REACTIONS (1)
  - Visual impairment [Unknown]
